FAERS Safety Report 18793194 (Version 2)
Quarter: 2021Q2

REPORT INFORMATION
  Report Type: Spontaneous
  Country: JP (occurrence: JP)
  Receive Date: 20210127
  Receipt Date: 20210623
  Transmission Date: 20210717
  Serious: Yes (Death, Hospitalization)
  Sender: FDA-Public Use
  Company Number: JP-ABBVIE-21K-087-3748042-00

PATIENT
  Age: 81 Year
  Sex: Male
  Weight: 44.7 kg

DRUGS (7)
  1. SKYRIZI [Suspect]
     Active Substance: RISANKIZUMAB-RZAA
     Indication: PSORIASIS
     Route: 058
     Dates: start: 20201130, end: 20201228
  2. FUROSEMIDE. [Concomitant]
     Active Substance: FUROSEMIDE
     Indication: CARDIAC FAILURE
     Route: 048
  3. REPAGLINIDE. [Concomitant]
     Active Substance: REPAGLINIDE
     Indication: DIABETES MELLITUS
     Route: 048
  4. ESOMEPRAZOLE MAGNESIUM. [Concomitant]
     Active Substance: ESOMEPRAZOLE MAGNESIUM
     Indication: PRODUCT USED FOR UNKNOWN INDICATION
     Route: 048
  5. TOLVAPTAN [Concomitant]
     Active Substance: TOLVAPTAN
     Indication: CARDIAC FAILURE
     Route: 048
  6. ROSUVASTATIN CALCIUM. [Concomitant]
     Active Substance: ROSUVASTATIN CALCIUM
     Indication: CARDIAC FAILURE
     Route: 048
  7. PIMOBENDAN [Concomitant]
     Active Substance: PIMOBENDAN
     Indication: CARDIAC FAILURE
     Route: 048

REACTIONS (2)
  - Blood pressure fluctuation [Unknown]
  - Cardiac failure [Fatal]

NARRATIVE: CASE EVENT DATE: 20201228
